APPROVED DRUG PRODUCT: TREXALL
Active Ingredient: METHOTREXATE SODIUM
Strength: EQ 7.5MG BASE
Dosage Form/Route: TABLET;ORAL
Application: A040385 | Product #002
Applicant: BARR LABORATORIES INC
Approved: Mar 21, 2001 | RLD: No | RS: No | Type: RX